FAERS Safety Report 16058366 (Version 4)
Quarter: 2019Q2

REPORT INFORMATION
  Report Type: Spontaneous
  Country: US (occurrence: US)
  Receive Date: 20190311
  Receipt Date: 20190528
  Transmission Date: 20190711
  Serious: Yes (Other)
  Sender: FDA-Public Use
  Company Number: US-ASTRAZENECA-2018SF34203

PATIENT
  Age: 814 Month
  Sex: Male

DRUGS (21)
  1. IBUPROFEN. [Concomitant]
     Active Substance: IBUPROFEN
     Dates: start: 20171214
  2. RANITIDINE. [Concomitant]
     Active Substance: RANITIDINE
  3. VALSARTAN. [Concomitant]
     Active Substance: VALSARTAN
     Dates: start: 20181104
  4. ATIVAN [Concomitant]
     Active Substance: LORAZEPAM
     Dates: start: 20181102
  5. PRILOSEC OTC [Suspect]
     Active Substance: OMEPRAZOLE MAGNESIUM
     Indication: GASTROOESOPHAGEAL REFLUX DISEASE
     Route: 048
     Dates: start: 2010, end: 2018
  6. PRILOSEC OTC [Suspect]
     Active Substance: OMEPRAZOLE MAGNESIUM
     Indication: GASTROOESOPHAGEAL REFLUX DISEASE
     Route: 048
     Dates: start: 20150301, end: 20170331
  7. DICLOFENAC [Concomitant]
     Active Substance: DICLOFENAC
  8. LACTULOSE. [Concomitant]
     Active Substance: LACTULOSE
     Dates: start: 20180317
  9. CHLORTHALIDONE. [Concomitant]
     Active Substance: CHLORTHALIDONE
     Dates: start: 20181104
  10. AMLODIPINE BESYLATE. [Concomitant]
     Active Substance: AMLODIPINE BESYLATE
  11. LISINOPRIL. [Concomitant]
     Active Substance: LISINOPRIL
     Dates: start: 20170825
  12. KETOROLAC [Concomitant]
     Active Substance: KETOROLAC\KETOROLAC TROMETHAMINE
  13. CEFPODOXIME [Concomitant]
     Active Substance: CEFPODOXIME
     Dates: start: 20170627
  14. GUAIFENESIN. [Concomitant]
     Active Substance: GUAIFENESIN
     Dates: start: 20170627
  15. LOSARTAN. [Concomitant]
     Active Substance: LOSARTAN
     Dates: start: 20180215
  16. METHOCARBAMOL. [Concomitant]
     Active Substance: METHOCARBAMOL
  17. DEXAMETHASONE. [Concomitant]
     Active Substance: DEXAMETHASONE
     Dates: start: 20171214
  18. SUCRALFATE. [Concomitant]
     Active Substance: SUCRALFATE
  19. ALBUTEROL. [Concomitant]
     Active Substance: ALBUTEROL
  20. HYDROCHLOROTHIAZIDE. [Concomitant]
     Active Substance: HYDROCHLOROTHIAZIDE
  21. BUDESONIDE. [Concomitant]
     Active Substance: BUDESONIDE

REACTIONS (2)
  - Renal injury [Unknown]
  - Chronic kidney disease [Not Recovered/Not Resolved]

NARRATIVE: CASE EVENT DATE: 201707
